FAERS Safety Report 9690789 (Version 1)
Quarter: 2013Q4

REPORT INFORMATION
  Report Type: Spontaneous
  Country: US (occurrence: US)
  Receive Date: 20131115
  Receipt Date: 20131115
  Transmission Date: 20140711
  Serious: Yes (Other)
  Sender: FDA-Public Use
  Company Number: US-PFIZER INC-2013325293

PATIENT
  Age: 59 Year
  Sex: Female
  Weight: 83.9 kg

DRUGS (6)
  1. TIKOSYN [Suspect]
     Indication: HEART RATE INCREASED
     Dosage: 500 UG, 2X/DAY
     Dates: start: 20130419
  2. AMLODIPINE [Concomitant]
     Dosage: UNK
  3. LISINOPRIL [Concomitant]
     Dosage: UNK
  4. PRILOSEC [Concomitant]
     Dosage: UNK
  5. MAG OXIDE [Concomitant]
     Dosage: UNK
  6. ASPIRIN [Concomitant]
     Dosage: UNK

REACTIONS (5)
  - Mental impairment [Recovered/Resolved]
  - Feeling abnormal [Recovered/Resolved]
  - Thinking abnormal [Recovered/Resolved]
  - Fatigue [Recovered/Resolved]
  - Syncope [Recovered/Resolved]
